FAERS Safety Report 5407292-0 (Version None)
Quarter: 2007Q3

REPORT INFORMATION
  Report Type: 
  Country: None (occurrence: None)
  Receive Date: 20070807
  Receipt Date: 20070803
  Transmission Date: 20080115
  Serious: Yes (Death, Life-Threatening)
  Sender: FDA-Public Use
  Company Number: HQWYE023812JUL07

PATIENT
  Sex: Female

DRUGS (5)
  1. AMIODARONE HCL [Suspect]
     Indication: VENTRICULAR FLUTTER
     Dosage: 800 MG DOSE ONCE VIA A GASTRIC TUBE
     Route: 048
     Dates: start: 20070529, end: 20070529
  2. AMIODARONE HCL [Suspect]
     Route: 048
     Dates: start: 20070530, end: 20070603
  3. AMIODARONE HCL [Suspect]
     Route: 048
     Dates: start: 20070604, end: 20070703
  4. LIDOCAINE [Concomitant]
     Indication: VENTRICULAR FLUTTER
     Route: 042
     Dates: start: 20070524, end: 20070719
  5. ASPENON [Concomitant]
     Indication: VENTRICULAR FLUTTER
     Route: 049
     Dates: start: 20070612, end: 20070703

REACTIONS (4)
  - INTERSTITIAL LUNG DISEASE [None]
  - MULTI-ORGAN FAILURE [None]
  - SEPSIS [None]
  - SEPTIC SHOCK [None]
